FAERS Safety Report 5846143-7 (Version None)
Quarter: 2008Q3

REPORT INFORMATION
  Report Type: 
  Country: None (occurrence: None)
  Receive Date: 20080814
  Receipt Date: 20080807
  Transmission Date: 20090109
  Serious: Yes (Other)
  Sender: FDA-Public Use
  Company Number: BR-PFIZER INC-2008066743

PATIENT
  Sex: Female

DRUGS (1)
  1. CELEBRA [Suspect]
     Indication: ARTHROPATHY
     Dosage: TEXT:UNIT DOSE: ONE CAPSULE, TDD: 2 CAPSULES
     Route: 048

REACTIONS (1)
  - ATROPHY [None]
